FAERS Safety Report 9802759 (Version 2)
Quarter: 2014Q2

REPORT INFORMATION
  Report Type: Report from Study
  Country: IT (occurrence: IT)
  Receive Date: 20140108
  Receipt Date: 20140424
  Transmission Date: 20141212
  Serious: Yes (Other)
  Sender: FDA-Public Use
  Company Number: IT-ROCHE-1328242

PATIENT
  Sex: 0

DRUGS (2)
  1. RITUXIMAB [Suspect]
     Indication: PROPHYLAXIS AGAINST TRANSPLANT REJECTION
     Route: 065
  2. CYCLOPHOSPHAMIDE [Suspect]
     Indication: PROPHYLAXIS AGAINST TRANSPLANT REJECTION
     Route: 065

REACTIONS (4)
  - Febrile neutropenia [Unknown]
  - Cytomegalovirus infection [Unknown]
  - Herpes zoster [Unknown]
  - Aspergillus infection [Unknown]
